FAERS Safety Report 6371253-8 (Version None)
Quarter: 2009Q3

REPORT INFORMATION
  Report Type: 
  Country: None (occurrence: None)
  Receive Date: 20090923
  Receipt Date: 20071128
  Transmission Date: 20100115
  Serious: No
  Sender: FDA-Public Use
  Company Number: US-ASTRAZENECA-2007UW05570

PATIENT
  Age: 2352 Day
  Sex: Male
  Weight: 43.1 kg

DRUGS (14)
  1. SEROQUEL [Suspect]
     Indication: BIPOLAR DISORDER
     Route: 048
     Dates: start: 19960101, end: 19970101
  2. SEROQUEL [Suspect]
     Indication: DEPRESSION
     Route: 048
     Dates: start: 19960101, end: 19970101
  3. SEROQUEL [Suspect]
     Route: 048
     Dates: start: 20040303
  4. SEROQUEL [Suspect]
     Route: 048
     Dates: start: 20040303
  5. RISPERDAL [Concomitant]
     Route: 065
     Dates: start: 19960101, end: 19970101
  6. TEGRETOL [Concomitant]
     Route: 048
  7. ZANTAC [Concomitant]
     Route: 048
  8. ALBUTEROL [Concomitant]
     Dosage: 90 MCG-200 MCG
     Route: 045
  9. PAXIL [Concomitant]
     Route: 065
  10. METFORMIN HCL [Concomitant]
     Route: 065
  11. ABILIFY [Concomitant]
     Route: 048
  12. TOPAMAX [Concomitant]
     Dosage: 100 MG- 400 MG
     Route: 048
  13. CONCERTA [Concomitant]
     Route: 048
  14. OMNICEF [Concomitant]
     Route: 048

REACTIONS (17)
  - BACK PAIN [None]
  - CHEST PAIN [None]
  - CHRONIC TONSILLITIS [None]
  - CONTUSION [None]
  - DERMATITIS [None]
  - DYSURIA [None]
  - EUSTACHIAN TUBE DYSFUNCTION [None]
  - GASTROENTERITIS [None]
  - HYPERTENSION [None]
  - HYPOTHYROIDISM [None]
  - JOINT SPRAIN [None]
  - OTITIS MEDIA [None]
  - PHARYNGITIS [None]
  - SLEEP APNOEA SYNDROME [None]
  - TYPE 2 DIABETES MELLITUS [None]
  - UPPER RESPIRATORY TRACT INFECTION [None]
  - VIRAL INFECTION [None]
